FAERS Safety Report 4479153-5 (Version None)
Quarter: 2004Q3

REPORT INFORMATION
  Report Type: 
  Country: None (occurrence: None)
  Receive Date: 20040923
  Receipt Date: 20040702
  Transmission Date: 20050211
  Serious: Yes (Hospitalization)
  Sender: FDA-Public Use
  Company Number: 207604

PATIENT
  Age: 64 Year
  Sex: Male
  Weight: 77.1 kg

DRUGS (6)
  1. AVASTIN [Suspect]
     Indication: COLORECTAL CANCER METASTATIC
     Dosage: 425 MG, Q2W, INTRAVENOUS
     Route: 042
     Dates: start: 20040609
  2. AVASTIN [Suspect]
     Indication: COLORECTAL CANCER METASTATIC
     Dosage: 425 MG, Q2W, INTRAVENOUS
     Route: 042
     Dates: start: 20040628
  3. OXALIPLATIN [Concomitant]
  4. LEUCOVORIN CALCIUM [Concomitant]
  5. FLUOROURACIL [Concomitant]
  6. RADIOTHERAPY (RADIATION THERAPY) [Concomitant]

REACTIONS (1)
  - INTESTINAL OBSTRUCTION [None]
